FAERS Safety Report 12374827 (Version 1)
Quarter: 2016Q2

REPORT INFORMATION
  Report Type: Spontaneous
  Country: US (occurrence: None)
  Receive Date: 20160516
  Receipt Date: 20160516
  Transmission Date: 20160815
  Serious: Yes (Disabling)
  Sender: FDA-Public Use
  Company Number: None

PATIENT
  Age: 61 Year
  Sex: Female
  Weight: 56.7 kg

DRUGS (10)
  1. OLOPATADINE [Concomitant]
     Active Substance: OLOPATADINE
  2. VITAMIN B12 [Concomitant]
     Active Substance: CYANOCOBALAMIN
  3. FLUOXETINE [Concomitant]
     Active Substance: FLUOXETINE HYDROCHLORIDE
  4. VITAMIN D3 [Concomitant]
     Active Substance: CHOLECALCIFEROL
  5. CIPRO [Suspect]
     Active Substance: CIPROFLOXACIN HYDROCHLORIDE
     Indication: RESPIRATORY TRACT INFECTION
     Dosage: 14 CAPSULE(S) TWICE A DAY TAKEN BY MOUTH
     Route: 048
     Dates: start: 20150114, end: 20150120
  6. SINGULAIR [Concomitant]
     Active Substance: MONTELUKAST SODIUM
  7. MVI [Concomitant]
     Active Substance: VITAMINS
  8. PROLIA [Concomitant]
     Active Substance: DENOSUMAB
  9. DOXYCYCLINE. [Concomitant]
     Active Substance: DOXYCYCLINE
  10. RESTASIS [Concomitant]
     Active Substance: CYCLOSPORINE

REACTIONS (3)
  - Arthralgia [None]
  - Soft tissue disorder [None]
  - Groin pain [None]

NARRATIVE: CASE EVENT DATE: 20150218
